FAERS Safety Report 8689091 (Version 3)
Quarter: 2013Q3

REPORT INFORMATION
  Report Type: Spontaneous
  Country: US (occurrence: US)
  Receive Date: 20120727
  Receipt Date: 20130827
  Transmission Date: 20140515
  Serious: No
  Sender: FDA-Public Use
  Company Number: US-ASTRAZENECA-2011SE74613

PATIENT
  Age: 55 Year
  Sex: Female
  Weight: 72.6 kg

DRUGS (14)
  1. SEROQUEL [Suspect]
     Indication: BIPOLAR DISORDER
     Route: 048
  2. SEROQUEL [Interacting]
     Indication: MANIA
     Route: 048
  3. SEROQUEL [Interacting]
     Indication: BIPOLAR DISORDER
     Route: 048
  4. SEROQUEL [Interacting]
     Indication: MANIA
     Route: 048
  5. SEROQUEL [Interacting]
     Indication: BIPOLAR DISORDER
     Route: 048
  6. SEROQUEL [Interacting]
     Indication: MANIA
     Route: 048
  7. SEROQUEL [Interacting]
     Indication: BIPOLAR DISORDER
     Dosage: 400 MG DAILY + 100 MG IN THE MORNING ONCE
     Route: 048
  8. SEROQUEL [Interacting]
     Indication: MANIA
     Dosage: 400 MG DAILY + 100 MG IN THE MORNING ONCE
     Route: 048
  9. SEROQUEL [Interacting]
     Indication: BIPOLAR DISORDER
     Route: 048
  10. SEROQUEL [Interacting]
     Indication: MANIA
     Route: 048
  11. GRAPEFRUIT JUICE [Interacting]
     Route: 048
  12. LITHIUM [Concomitant]
     Indication: MENTAL DISORDER
     Route: 048
  13. CITALOPRAM [Concomitant]
     Indication: ANXIETY
     Route: 048
  14. ERY-TAB [Concomitant]
     Indication: ANTIBIOTIC PROPHYLAXIS
     Route: 048

REACTIONS (18)
  - Labelled drug-food interaction medication error [Unknown]
  - Disturbance in attention [Unknown]
  - Balance disorder [Unknown]
  - Impaired driving ability [Unknown]
  - Agitation [Unknown]
  - Bronchitis [Unknown]
  - Aggression [Unknown]
  - Adverse event [Unknown]
  - Impaired work ability [Unknown]
  - Decreased interest [Unknown]
  - Food craving [Unknown]
  - Drooling [Unknown]
  - Drug withdrawal syndrome [Unknown]
  - Irritability [Unknown]
  - Weight increased [Unknown]
  - Dizziness [Unknown]
  - Drug ineffective [Unknown]
  - Drug dose omission [Unknown]
